FAERS Safety Report 7286021-2 (Version None)
Quarter: 2011Q1

REPORT INFORMATION
  Report Type: 
  Country: None (occurrence: None)
  Receive Date: 20110210
  Receipt Date: 20110128
  Transmission Date: 20110831
  Serious: Yes (Hospitalization)
  Sender: FDA-Public Use
  Company Number: JP-ABBOTT-10P-087-0692862-00

PATIENT
  Sex: Female

DRUGS (4)
  1. BUSCOPAN [Concomitant]
     Indication: ABDOMINAL PAIN
     Route: 048
     Dates: start: 20101122
  2. NOLVADEX [Concomitant]
     Indication: BREAST CANCER
     Route: 048
     Dates: start: 20061122
  3. LEUPRORELIN DEPOT [Suspect]
     Indication: BREAST CANCER
     Route: 058
     Dates: start: 20061122, end: 20080625
  4. LOXONIN [Concomitant]
     Indication: HEADACHE
     Route: 048
     Dates: start: 20080704

REACTIONS (1)
  - CHOLECYSTITIS [None]
